FAERS Safety Report 8959784 (Version 3)
Quarter: 2013Q2

REPORT INFORMATION
  Report Type: Report from Study
  Country: GB (occurrence: GB)
  Receive Date: 20121212
  Receipt Date: 20130523
  Transmission Date: 20140414
  Serious: Yes (Hospitalization)
  Sender: FDA-Public Use
  Company Number: GB-AMGEN-GBRCT2012078395

PATIENT
  Age: 63 Year
  Sex: Female
  Weight: 86 kg

DRUGS (14)
  1. ETANERCEPT [Suspect]
     Indication: PRODUCT USED FOR UNKNOWN INDICATION
     Dosage: 50 MG, 2 TIMES/WK
     Dates: start: 20101201
  2. ALENDRONIC ACID [Concomitant]
     Dosage: UNK
     Dates: start: 20000101
  3. CALCICHEW-D3 [Concomitant]
     Dosage: UNK
     Dates: start: 20000101
  4. DOXAZOSIN [Concomitant]
     Dosage: 4 MG, 1X/DAY
     Dates: start: 20000101
  5. NEBIVOLOL [Concomitant]
     Dosage: 5 MG, 1X/DAY
     Dates: start: 20000101
  6. ROSUVASTATIN [Concomitant]
     Dosage: 10 MG, UNK
     Dates: start: 20000101
  7. METHOTREXATE [Concomitant]
     Dosage: 15 MG O/W, 5 MG O/W
     Dates: start: 20120127, end: 20120706
  8. CLARITHROMYCIN [Concomitant]
     Dosage: UNK
     Dates: start: 20120229, end: 20120307
  9. AMITRIPTYLINE [Concomitant]
     Dosage: 10 MG AT NIGHT
     Dates: start: 20120327
  10. DOMPERIDONE [Concomitant]
     Dosage: 12 MG, 3X/DAY
     Dates: start: 20120630, end: 20120704
  11. AZITHROMYCIN [Concomitant]
     Dosage: UNK
     Dates: start: 20120630, end: 20120704
  12. DAKTARIN                           /00310802/ [Concomitant]
     Dosage: UNK
     Dates: start: 20120717, end: 20120724
  13. MOVICOL                            /01749801/ [Concomitant]
     Dosage: UNK
     Dates: start: 20120717, end: 20120724
  14. TOLTERODINE TARTRATE [Concomitant]
     Dosage: 4 MG, 1X/DAY

REACTIONS (2)
  - Respiratory failure [Unknown]
  - Alveolitis [Unknown]
